FAERS Safety Report 5368437-4 (Version None)
Quarter: 2007Q2

REPORT INFORMATION
  Report Type: 
  Country: None (occurrence: None)
  Receive Date: 20070621
  Receipt Date: 20070604
  Transmission Date: 20071010
  Serious: Yes (Life-Threatening)
  Sender: FDA-Public Use
  Company Number: 200711989

PATIENT
  Age: 61 Year
  Sex: Male

DRUGS (17)
  1. SANDOGLOBULIN LYO (IMMUNOGLOBULIN HUMAN NORMAL) (CSL BEHRING) [Suspect]
     Indication: NEUROPATHY PERIPHERAL
     Dosage: SEE IMAGE
     Route: 042
     Dates: start: 20070426, end: 20070428
  2. SANDOGLOBULIN LYO (IMMUNOGLOBULIN HUMAN NORMAL) (CSL BEHRING) [Suspect]
     Indication: NEUROPATHY PERIPHERAL
     Dosage: SEE IMAGE
     Route: 042
     Dates: start: 20070428, end: 20070428
  3. SANDOGLOBULIN LYO (IMMUNOGLOBULIN HUMAN NORMAL) (CSL BEHRING) [Suspect]
     Indication: NEUROPATHY PERIPHERAL
     Dosage: SEE IMAGE
     Route: 042
     Dates: start: 20070428, end: 20070428
  4. SANDOGLOBULIN LYO (IMMUNOGLOBULIN HUMAN NORMAL) (CSL BEHRING) [Suspect]
     Indication: NEUROPATHY PERIPHERAL
     Dosage: SEE IMAGE
     Route: 042
     Dates: start: 20070428, end: 20070428
  5. SANDOGLOBULIN LYO (IMMUNOGLOBULIN HUMAN NORMAL) (CSL BEHRING) [Suspect]
  6. SANDOGLOBULIN LYO (IMMUNOGLOBULIN HUMAN NORMAL) (CSL BEHRING) [Suspect]
  7. DIANTALVIC [Concomitant]
  8. IMOVANE [Concomitant]
  9. DIFFU K [Concomitant]
  10. CEBUTID [Concomitant]
  11. ART [Concomitant]
  12. ATHYMIL [Concomitant]
  13. VITAMINUM B1 [Concomitant]
  14. NEURONTIN [Concomitant]
  15. LEVENOX /0089602/ [Concomitant]
  16. HEPARIN [Concomitant]
  17. XANAX [Concomitant]

REACTIONS (10)
  - ACINETOBACTER INFECTION [None]
  - BLOOD PRESSURE INCREASED [None]
  - CATHETER SEPSIS [None]
  - DIZZINESS [None]
  - ENTEROBACTER INFECTION [None]
  - HEART RATE INCREASED [None]
  - LIVEDO RETICULARIS [None]
  - OXYGEN SATURATION DECREASED [None]
  - SERRATIA INFECTION [None]
  - VOMITING [None]
